FAERS Safety Report 8399853-4 (Version None)
Quarter: 2012Q2

REPORT INFORMATION
  Report Type: 
  Country: None (occurrence: None)
  Receive Date: 20120525
  Receipt Date: 20120516
  Transmission Date: 20120825
  Serious: Yes (Hospitalization)
  Sender: FDA-Public Use
  Company Number: TIF2012A00040

PATIENT
  Age: 80 Year
  Sex: Male

DRUGS (6)
  1. PIOGLITAZONE HYDROCHLORIDE [Suspect]
     Indication: TYPE 2 DIABETES MELLITUS
     Dates: start: 20120401, end: 20120516
  2. GLUCOPHAGE [Concomitant]
  3. NEBIVOLOLO ACTAVIS (NEBIVOLOL) [Concomitant]
  4. OXYCONTIN [Concomitant]
  5. OMEPRAZOLO GERMED (OMEPRAZOLE) [Concomitant]
  6. KARVEZIDE (HYDROCHLOROTHIAZIDE, IRBESARTAN) [Concomitant]

REACTIONS (2)
  - RENAL FAILURE ACUTE [None]
  - LACTIC ACIDOSIS [None]
